FAERS Safety Report 5428809-6 (Version None)
Quarter: 2007Q3

REPORT INFORMATION
  Report Type: 
  Country: None (occurrence: None)
  Receive Date: 20070829
  Receipt Date: 20060814
  Transmission Date: 20080115
  Serious: No
  Sender: FDA-Public Use
  Company Number: A0616623A

PATIENT
  Sex: Male

DRUGS (1)
  1. ZOVIRAX [Suspect]
     Indication: HERPES SIMPLEX
     Route: 047
     Dates: start: 20060703

REACTIONS (3)
  - DRUG INEFFECTIVE [None]
  - INCORRECT ROUTE OF DRUG ADMINISTRATION [None]
  - MEDICATION ERROR [None]
